FAERS Safety Report 20903915 (Version 2)
Quarter: 2022Q2

REPORT INFORMATION
  Report Type: Spontaneous
  Country: GR (occurrence: GR)
  Receive Date: 20220602
  Receipt Date: 20220603
  Transmission Date: 20220721
  Serious: Yes (Death, Life-Threatening, Hospitalization, Other)
  Sender: FDA-Public Use
  Company Number: GR-BoehringerIngelheim-2022-BI-173908

PATIENT
  Age: 85 Year
  Sex: Female

DRUGS (1)
  1. PRAXBIND [Suspect]
     Active Substance: IDARUCIZUMAB
     Indication: Gastrointestinal haemorrhage
     Dosage: 5 GRAMS ONCE (2.5+2.5)
     Route: 042
     Dates: start: 20220522

REACTIONS (2)
  - Disseminated intravascular coagulation [Fatal]
  - Rectal haemorrhage [Unknown]

NARRATIVE: CASE EVENT DATE: 20220524
